FAERS Safety Report 16609365 (Version 1)
Quarter: 2019Q3

REPORT INFORMATION
  Report Type: Spontaneous
  Country: US (occurrence: US)
  Receive Date: 20190720
  Receipt Date: 20190720
  Transmission Date: 20191004
  Serious: Yes (Hospitalization, Other)
  Sender: FDA-Public Use
  Company Number: None

PATIENT
  Age: 44 Year
  Sex: Female
  Weight: 74.7 kg

DRUGS (5)
  1. AIMOVIG [Suspect]
     Active Substance: ERENUMAB-AOOE
     Indication: MIGRAINE
     Dosage: ?          OTHER FREQUENCY:Q30 DAYS;?
     Route: 058
     Dates: start: 20190401
  2. ZOMIG [Suspect]
     Active Substance: ZOLMITRIPTAN
     Indication: MIGRAINE
     Route: 048
     Dates: start: 20120701, end: 20190715
  3. LISINOPRIL. [Concomitant]
     Active Substance: LISINOPRIL
  4. ALBUTEROL. [Concomitant]
     Active Substance: ALBUTEROL
  5. SERTRALINE 100 MG DAILY [Concomitant]

REACTIONS (1)
  - Colitis ischaemic [None]

NARRATIVE: CASE EVENT DATE: 20190715
